FAERS Safety Report 24727371 (Version 1)
Quarter: 2024Q4

REPORT INFORMATION
  Report Type: Spontaneous
  Country: US (occurrence: US)
  Receive Date: 20241212
  Receipt Date: 20241212
  Transmission Date: 20250114
  Serious: Yes (Other)
  Sender: BAYER HEALTHCARE LLC
  Company Number: US-BAYER-2024A172855

PATIENT
  Age: 88 Year
  Sex: Male

DRUGS (2)
  1. ALKA-SELTZER PLUS COLD FORMULA [Suspect]
     Active Substance: ASPIRIN\CHLORPHENIRAMINE MALEATE\PHENYLEPHRINE BITARTRATE
     Indication: Hypersensitivity
     Dosage: 1 DF
     Route: 048
     Dates: start: 20241203, end: 20241203
  2. ALKA-SELTZER PLUS COLD FORMULA [Suspect]
     Active Substance: ASPIRIN\CHLORPHENIRAMINE MALEATE\PHENYLEPHRINE BITARTRATE
     Indication: Nasopharyngitis

REACTIONS (1)
  - Choking [Recovered/Resolved]

NARRATIVE: CASE EVENT DATE: 20241203
